FAERS Safety Report 10554114 (Version 1)
Quarter: 2014Q4

REPORT INFORMATION
  Report Type: Spontaneous
  Country: US (occurrence: None)
  Receive Date: 20141023
  Receipt Date: 20141023
  Transmission Date: 20150529
  Serious: No
  Sender: FDA-Public Use
  Company Number: AP356-01080-SPO-US

PATIENT
  Age: 55 Year
  Sex: Female
  Weight: 87 kg

DRUGS (2)
  1. BELVIQ [Suspect]
     Active Substance: LORCASERIN HYDROCHLORIDE
     Indication: WEIGHT DECREASED
     Dosage: 10 MG, 1 IN 1 D, ORAL
     Route: 048
     Dates: start: 2014, end: 2014
  2. BLOOD PRESSURE MEDICATION ( ANTIHYPERTENSIVE) [Concomitant]

REACTIONS (4)
  - Weight increased [None]
  - Somnolence [None]
  - Dizziness [None]
  - Hunger [None]

NARRATIVE: CASE EVENT DATE: 2014
